FAERS Safety Report 11461530 (Version 1)
Quarter: 2015Q3

REPORT INFORMATION
  Report Type: Spontaneous
  Country: US (occurrence: US)
  Receive Date: 20150831
  Receipt Date: 20150831
  Transmission Date: 20151125
  Serious: No
  Sender: FDA-Public Use
  Company Number: US-ELI_LILLY_AND_COMPANY-US201008000633

PATIENT
  Age: 31 Year
  Sex: Male

DRUGS (1)
  1. CYMBALTA [Suspect]
     Active Substance: DULOXETINE HYDROCHLORIDE
     Indication: DEPRESSION
     Dosage: 30 MG, DAILY (1/D)
     Dates: start: 20100726, end: 20100730

REACTIONS (15)
  - Blood potassium decreased [Unknown]
  - Hostility [Recovered/Resolved]
  - Feeling abnormal [Recovered/Resolved]
  - Dizziness [Recovered/Resolved]
  - Aggression [Recovered/Resolved]
  - Lethargy [Recovered/Resolved]
  - Presyncope [Recovered/Resolved]
  - Anxiety [Unknown]
  - Irritability [Recovered/Resolved]
  - Agitation [Recovered/Resolved]
  - Feeling hot [Not Recovered/Not Resolved]
  - Erythema [Not Recovered/Not Resolved]
  - Hallucination [Recovered/Resolved]
  - Ocular hyperaemia [Recovered/Resolved]
  - Palpitations [Recovered/Resolved]

NARRATIVE: CASE EVENT DATE: 20100729
